FAERS Safety Report 18143417 (Version 1)
Quarter: 2020Q3

REPORT INFORMATION
  Report Type: Spontaneous
  Country: GB (occurrence: GB)
  Receive Date: 20200812
  Receipt Date: 20200812
  Transmission Date: 20201103
  Serious: Yes (Other)
  Sender: FDA-Public Use
  Company Number: GB-ASTRAZENECA-2020SE98233

PATIENT
  Age: 44 Year
  Sex: Female
  Weight: 73 kg

DRUGS (4)
  1. QUETIAPINE. [Suspect]
     Active Substance: QUETIAPINE
     Indication: PRODUCT USED FOR UNKNOWN INDICATION
     Dosage: 40.0ML UNKNOWN
     Route: 048
  2. DEPIXOL (FLUPENTIXOL DECANOATE) [Suspect]
     Active Substance: FLUPENTIXOL DECANOATE
     Indication: PRODUCT USED FOR UNKNOWN INDICATION
     Route: 065
  3. QUETIAPINE. [Suspect]
     Active Substance: QUETIAPINE
     Indication: PRODUCT USED FOR UNKNOWN INDICATION
     Dosage: 150.0MG UNKNOWN
     Route: 048
  4. DEPIXOL (FLUPENTIXOL DECANOATE) [Suspect]
     Active Substance: FLUPENTIXOL DECANOATE
     Indication: PRODUCT USED FOR UNKNOWN INDICATION
     Route: 065

REACTIONS (17)
  - Emotional disorder [Unknown]
  - Therapy cessation [Unknown]
  - Nodule [Unknown]
  - Uterine leiomyoma [Unknown]
  - Feeling abnormal [Unknown]
  - Infertility female [Recovered/Resolved]
  - Oligomenorrhoea [Recovered/Resolved]
  - Dysstasia [Unknown]
  - Hormone level abnormal [Unknown]
  - Product administration error [Unknown]
  - Hypomenorrhoea [Unknown]
  - Injection site discomfort [Unknown]
  - Overdose [Unknown]
  - Cyst [Unknown]
  - Crying [Unknown]
  - Alopecia [Unknown]
  - Syncope [Unknown]
